FAERS Safety Report 9903266 (Version 3)
Quarter: 2014Q2

REPORT INFORMATION
  Report Type: Report from Study
  Country: DE (occurrence: DE)
  Receive Date: 20140217
  Receipt Date: 20140521
  Transmission Date: 20141212
  Serious: Yes (Hospitalization, Other)
  Sender: FDA-Public Use
  Company Number: PHHY2014DE015646

PATIENT
  Sex: Male
  Weight: 75 kg

DRUGS (6)
  1. EXELON PATCH [Suspect]
     Indication: DEMENTIA ALZHEIMER^S TYPE
     Dosage: 4.6 MG,DAILY
     Dates: start: 20130820, end: 20131111
  2. TAMSULOSIN [Suspect]
     Indication: BENIGN PROSTATIC HYPERPLASIA
     Dosage: 0.4 MG, QD
     Dates: start: 20131111, end: 20131111
  3. VERAPAMIL [Concomitant]
     Indication: HYPERTENSION
     Dosage: 240 MG, DAILY
     Route: 048
     Dates: start: 2005
  4. VERAPAMIL [Concomitant]
     Indication: TACHYCARDIA
  5. ATMADISC [Concomitant]
     Indication: BRONCHITIS CHRONIC
     Dosage: 250 UG, DAILY
     Route: 055
     Dates: start: 2003
  6. ISMN [Concomitant]
     Indication: HYPERTENSION
     Dosage: 40 MG, DAILY
     Route: 048
     Dates: start: 2005

REACTIONS (5)
  - Delirium [Recovered/Resolved with Sequelae]
  - Cerebrovascular accident [Unknown]
  - Abnormal behaviour [Not Recovered/Not Resolved]
  - Aggression [Not Recovered/Not Resolved]
  - Impulsive behaviour [Not Recovered/Not Resolved]
